FAERS Safety Report 5078942-6 (Version None)
Quarter: 2006Q3

REPORT INFORMATION
  Report Type: 
  Country: None (occurrence: None)
  Receive Date: 20060814
  Receipt Date: 20060804
  Transmission Date: 20061208
  Serious: Yes (Hospitalization)
  Sender: FDA-Public Use
  Company Number: FR-JNJFOC-20060801540

PATIENT
  Age: 85 Year
  Sex: Female

DRUGS (6)
  1. HALDOL [Suspect]
     Indication: DRUG USE FOR UNKNOWN INDICATION
     Route: 048
  2. EFFEXOR [Concomitant]
     Indication: DEPRESSION
     Route: 065
  3. SECTRAL [Concomitant]
     Indication: HYPERTENSION
     Route: 065
  4. XANAX [Concomitant]
     Route: 065
  5. DIPIPERON [Concomitant]
     Route: 048
  6. ADALIX [Concomitant]
     Indication: HYPERTENSION
     Route: 065

REACTIONS (3)
  - COORDINATION ABNORMAL [None]
  - DISORIENTATION [None]
  - URINARY RETENTION [None]
